FAERS Safety Report 23771473 (Version 1)
Quarter: 2024Q2

REPORT INFORMATION
  Report Type: Spontaneous
  Country: FR (occurrence: FR)
  Receive Date: 20240423
  Receipt Date: 20240423
  Transmission Date: 20240716
  Serious: Yes (Other)
  Sender: FDA-Public Use
  Company Number: FR-AFSSAPS-RN2024000102

PATIENT
  Age: 17 Year
  Sex: Female

DRUGS (2)
  1. OLANZAPINE [Suspect]
     Active Substance: OLANZAPINE
     Indication: Psychotic disorder
     Dosage: UNK
     Route: 048
     Dates: start: 202208
  2. OLANZAPINE [Suspect]
     Active Substance: OLANZAPINE
     Dosage: UNK
     Route: 048
     Dates: start: 202303

REACTIONS (2)
  - Hyperprolactinaemia [Not Recovered/Not Resolved]
  - Weight increased [Recovering/Resolving]

NARRATIVE: CASE EVENT DATE: 20230301
